FAERS Safety Report 4914895-6 (Version None)
Quarter: 2006Q1

REPORT INFORMATION
  Report Type: 
  Country: None (occurrence: None)
  Receive Date: 20060217
  Receipt Date: 19990722
  Transmission Date: 20060701
  Serious: Yes (Hospitalization)
  Sender: FDA-Public Use
  Company Number: US-BOEHRINGER INGELHEIM PHARMACEUTICALS, INC.-1999-BP-00877

PATIENT
  Age: 8 Year
  Sex: Male
  Weight: 24.49 kg

DRUGS (4)
  1. VIRAMUNE [Suspect]
     Indication: HIV INFECTION
     Route: 048
     Dates: start: 19980817, end: 19990617
  2. STADUVINE [Suspect]
     Indication: HIV INFECTION
     Route: 048
     Dates: start: 19980817, end: 19990617
  3. DIDANOSINE [Suspect]
     Indication: HIV INFECTION
     Route: 048
     Dates: start: 19980817, end: 19990617
  4. NELFINAVIR [Suspect]
     Indication: HIV INFECTION
     Route: 048
     Dates: start: 19980817, end: 19990617

REACTIONS (1)
  - PANCREATITIS ACUTE [None]
